FAERS Safety Report 8276358-2 (Version None)
Quarter: 2012Q2

REPORT INFORMATION
  Report Type: 
  Country: None (occurrence: None)
  Receive Date: 20120412
  Receipt Date: 20120406
  Transmission Date: 20120825
  Serious: Yes (Other)
  Sender: FDA-Public Use
  Company Number: PHEH2011US03726

PATIENT
  Sex: Female

DRUGS (30)
  1. RECLAST [Suspect]
     Dosage: UNK UKN, UNK
     Route: 042
     Dates: start: 20110701
  2. MINERAL TAB [Concomitant]
     Dosage: UNK UKN, UNK
  3. COREG [Concomitant]
     Dosage: 75 MG, TID
  4. SOMA [Concomitant]
     Dosage: 350 MG, UNK
  5. SINGULAIR [Concomitant]
     Dosage: 10 MG, UNK
  6. BENO [Concomitant]
     Dosage: UNK UKN, UNK
  7. FLONASE [Concomitant]
     Dosage: UNK UKN, UNK
  8. TRAZODONE HCL [Concomitant]
     Dosage: 50 MG, UNK
  9. FUROSEMIDE [Concomitant]
     Dosage: 40 MG, UNK
  10. VITAMIN B-12 [Concomitant]
     Dosage: UNK UKN, UNK
  11. VITAMIN E [Concomitant]
     Dosage: 500 MG, UNK
  12. PRAVASTATIN [Concomitant]
     Dosage: 40 MG, UNK
  13. SPIRONOLACTONE [Concomitant]
     Dosage: 25 MG, UNK
  14. RELAPHEN [Concomitant]
  15. MILATON [Concomitant]
     Dosage: 4 MG, UNK
  16. CARVEDILOL [Concomitant]
     Dosage: 25 MG, UNK
  17. PROGESTERONE [Concomitant]
     Dosage: 5 MG, UNK
  18. PRILOFEC [Concomitant]
     Dosage: 20 MG, UNK
  19. HYDROCODONE [Concomitant]
     Dosage: 10 MG FOUR TIMES DAILY
  20. LOVAZA [Concomitant]
     Dosage: UNK UKN, UNK
  21. TUMBS [Concomitant]
     Dosage: UNK UKN, UNK
  22. CARISOPRODOL [Concomitant]
     Dosage: 350 MG, UNK
  23. RECLAST [Suspect]
     Dosage: 5 MG/100 ML PER YEAR
     Route: 042
     Dates: start: 20110810
  24. VITAMIN D [Concomitant]
     Dosage: 50000 UNITS
  25. ACIDOLPHALUS [Concomitant]
     Dosage: UNK UKN, UNK
  26. CALCIUM CARBONATE [Concomitant]
     Dosage: 50000 TWICE WEEK
  27. PREMPRO [Concomitant]
     Dosage: 0.625 MG, UNK
  28. CORSEN D [Concomitant]
     Dosage: FOUR TIMES DAILY
  29. SIMVAFTIN [Concomitant]
     Dosage: UNK UKN, UNK
  30. PROZAC [Concomitant]
     Dosage: 20 MG, UNK

REACTIONS (13)
  - RIB FRACTURE [None]
  - OSTEOPOROSIS [None]
  - ARTHRITIS [None]
  - PAIN IN JAW [None]
  - FLATULENCE [None]
  - DIARRHOEA [None]
  - NAUSEA [None]
  - INFLUENZA LIKE ILLNESS [None]
  - HEADACHE [None]
  - ARTHRALGIA [None]
  - ABDOMINAL PAIN [None]
  - FALL [None]
  - MYALGIA [None]
